FAERS Safety Report 18537716 (Version 4)
Quarter: 2021Q3

REPORT INFORMATION
  Report Type: Spontaneous
  Country: US (occurrence: US)
  Receive Date: 20201123
  Receipt Date: 20210715
  Transmission Date: 20211014
  Serious: Yes (Other)
  Sender: FDA-Public Use
  Company Number: US-INCYTE CORPORATION-2020IN011514

PATIENT

DRUGS (7)
  1. PEMAZYRE [Suspect]
     Active Substance: PEMIGATINIB
     Dosage: 13.5 MILLIGRAM
     Route: 048
     Dates: start: 202006
  2. PEMAZYRE [Suspect]
     Active Substance: PEMIGATINIB
     Indication: CHOLANGIOCARCINOMA
     Dosage: 13.5 MILLIGRAM
     Route: 048
     Dates: start: 202005
  3. PEMAZYRE [Suspect]
     Active Substance: PEMIGATINIB
     Dosage: 9 MILLIGRAM
     Route: 065
     Dates: start: 20210628
  4. ONDANSETRON [Concomitant]
     Active Substance: ONDANSETRON
     Indication: PRODUCT USED FOR UNKNOWN INDICATION
     Route: 065
  5. PEMAZYRE [Suspect]
     Active Substance: PEMIGATINIB
     Dosage: 9 MILLIGRAM
     Route: 065
     Dates: start: 202007
  6. METOPROLOL/HCTZ [Concomitant]
     Active Substance: HYDROCHLOROTHIAZIDE\METOPROLOL
     Indication: PRODUCT USED FOR UNKNOWN INDICATION
     Route: 065
  7. TRAMADOL. [Concomitant]
     Active Substance: TRAMADOL
     Indication: PRODUCT USED FOR UNKNOWN INDICATION
     Route: 065

REACTIONS (24)
  - Skin exfoliation [Unknown]
  - Lacrimation increased [Unknown]
  - Onychomadesis [Not Recovered/Not Resolved]
  - Haemorrhage [Unknown]
  - Neuropathy peripheral [Unknown]
  - Visual impairment [Not Recovered/Not Resolved]
  - Tooth abscess [Unknown]
  - Vision blurred [Unknown]
  - Nail toxicity [Unknown]
  - Trichiasis [Unknown]
  - Foreign body sensation in eyes [Unknown]
  - Peripheral swelling [Unknown]
  - Myopia [Unknown]
  - Eye disorder [Unknown]
  - Madarosis [Unknown]
  - Hypotony of eye [Recovered/Resolved]
  - Eyelid margin crusting [Unknown]
  - Localised infection [Unknown]
  - Platelet count decreased [Unknown]
  - Dry mouth [Unknown]
  - Dry skin [Unknown]
  - Gait disturbance [Unknown]
  - Product availability issue [Unknown]
  - Fatigue [Unknown]

NARRATIVE: CASE EVENT DATE: 202005
